FAERS Safety Report 8509887-4 (Version None)
Quarter: 2012Q3

REPORT INFORMATION
  Report Type: 
  Country: None (occurrence: None)
  Receive Date: 20120713
  Receipt Date: 20120710
  Transmission Date: 20120928
  Serious: Yes (Death, Hospitalization, Other)
  Sender: FDA-Public Use
  Company Number: US-B.I. PHARMACEUTICALS,INC./RIDGEFIELD-2012-BP-11265BP

PATIENT
  Sex: Male
  Weight: 78.017 kg

DRUGS (11)
  1. ZOCOR [Concomitant]
  2. COLTRAZINE [Concomitant]
     Indication: GOUT
  3. CIPROFLOXACIN HCL [Concomitant]
     Indication: URINARY TRACT INFECTION
  4. LASIX [Concomitant]
     Indication: CARDIAC FAILURE CONGESTIVE
     Dosage: 40 MG
     Dates: end: 20120324
  5. ACE INHIBITOR [Concomitant]
  6. SIMVASTATIN [Suspect]
     Indication: BLOOD CHOLESTEROL INCREASED
     Dates: start: 20050209, end: 20120324
  7. TERAZOSIN HCL [Concomitant]
     Indication: BENIGN PROSTATIC HYPERPLASIA
     Dates: end: 20120324
  8. TRADJENTA [Suspect]
     Indication: TYPE 2 DIABETES MELLITUS
     Dosage: 5 MG
     Dates: start: 20120221, end: 20120324
  9. ARB [Concomitant]
  10. TOPROL-XL [Concomitant]
     Indication: HYPERTENSION
     Dosage: 50 MG
     Dates: end: 20120324
  11. COLCHICINE [Concomitant]
     Indication: GOUT
     Dosage: 1.2 MG
     Dates: end: 20120324

REACTIONS (4)
  - POTENTIATING DRUG INTERACTION [None]
  - RHABDOMYOLYSIS [None]
  - RENAL FAILURE [None]
  - ACUTE RESPIRATORY DISTRESS SYNDROME [None]
